FAERS Safety Report 17510868 (Version 2)
Quarter: 2022Q2

REPORT INFORMATION
  Report Type: Report from Study
  Country: US (occurrence: US)
  Receive Date: 20200306
  Receipt Date: 20220513
  Transmission Date: 20220721
  Serious: No
  Sender: FDA-Public Use
  Company Number: US-HARMONY BIOSCIENCES-2019HMY00083

PATIENT
  Age: 23 Year
  Sex: Female
  Weight: 81.633 kg

DRUGS (5)
  1. WAKIX [Suspect]
     Active Substance: PITOLISANT HYDROCHLORIDE
     Indication: Narcolepsy
     Dosage: 35.6 MG, 1X/DAY
     Route: 048
     Dates: start: 201905
  2. UNSPECIFIED INGREDIENT [Suspect]
     Active Substance: UNSPECIFIED INGREDIENT
  3. XYREM [Concomitant]
     Active Substance: SODIUM OXYBATE
  4. EVEKEO [Concomitant]
     Active Substance: AMPHETAMINE SULFATE
  5. VITAMINS [Concomitant]
     Active Substance: VITAMINS

REACTIONS (1)
  - Acne cystic [Not Recovered/Not Resolved]

NARRATIVE: CASE EVENT DATE: 20190801
